FAERS Safety Report 23304162 (Version 2)
Quarter: 2024Q1

REPORT INFORMATION
  Report Type: Other
  Country: JP (occurrence: JP)
  Receive Date: 20231218
  Receipt Date: 20240117
  Transmission Date: 20240409
  Serious: Yes (Hospitalization)
  Sender: FDA-Public Use
  Company Number: JP-CHUGAI-2023043929

PATIENT
  Age: 48 Year
  Sex: Female

DRUGS (3)
  1. CELLCEPT [Suspect]
     Active Substance: MYCOPHENOLATE MOFETIL
     Indication: Prophylaxis against transplant rejection
     Dosage: UNK
     Route: 065
     Dates: end: 20230503
  2. PREDONINE [Suspect]
     Active Substance: PREDNISOLONE
     Indication: Prophylaxis against transplant rejection
     Route: 065
  3. TACROLIMUS [Suspect]
     Active Substance: TACROLIMUS
     Indication: Prophylaxis against transplant rejection
     Route: 065

REACTIONS (5)
  - Enteritis infectious [Recovering/Resolving]
  - Acute kidney injury [Recovering/Resolving]
  - Metabolic acidosis [Recovering/Resolving]
  - Dehydration [Recovering/Resolving]
  - Campylobacter infection [Recovering/Resolving]

NARRATIVE: CASE EVENT DATE: 20230501
